FAERS Safety Report 21569909 (Version 1)
Quarter: 2022Q4

REPORT INFORMATION
  Report Type: Report from Study
  Country: US (occurrence: US)
  Receive Date: 20221109
  Receipt Date: 20221109
  Transmission Date: 20230112
  Serious: No
  Sender: FDA-Public Use
  Company Number: US-ABBVIE-4137340

PATIENT
  Sex: Female

DRUGS (1)
  1. HUMIRA [Suspect]
     Active Substance: ADALIMUMAB
     Indication: Psoriasis
     Dosage: CITRATE FREE?STRENGTH-40 MG?DRUG START DATE- 09 JULY 2022
     Route: 058

REACTIONS (1)
  - Taste disorder [Not Recovered/Not Resolved]

NARRATIVE: CASE EVENT DATE: 20220101
